FAERS Safety Report 9259195 (Version 1)
Quarter: 2013Q2

REPORT INFORMATION
  Report Type: Spontaneous
  Country: FR (occurrence: FR)
  Receive Date: 20130426
  Receipt Date: 20130426
  Transmission Date: 20140414
  Serious: Yes (Other)
  Sender: FDA-Public Use
  Company Number: JP-ASTRAZENECA-2013SE27919

PATIENT
  Age: 53 Year
  Sex: Male

DRUGS (1)
  1. KENZEN [Suspect]
     Indication: PRODUCT USED FOR UNKNOWN INDICATION
     Route: 048
     Dates: start: 201302

REACTIONS (1)
  - Peripheral vascular disorder [Not Recovered/Not Resolved]
